FAERS Safety Report 14312125 (Version 1)
Quarter: 2017Q4

REPORT INFORMATION
  Report Type: Spontaneous
  Country: US (occurrence: US)
  Receive Date: 20171221
  Receipt Date: 20171221
  Transmission Date: 20180321
  Serious: Yes (Other)
  Sender: FDA-Public Use
  Company Number: US-TEVA-2017-US-836606

PATIENT
  Sex: Male

DRUGS (8)
  1. GEMCITABINE [Suspect]
     Active Substance: GEMCITABINE\GEMCITABINE HYDROCHLORIDE
     Indication: HEPATOSPLENIC T-CELL LYMPHOMA
     Dosage: UNK, UNKNOWN FREQ.
     Route: 065
  2. FLUDARABINE [Suspect]
     Active Substance: FLUDARABINE PHOSPHATE
     Indication: HEPATOSPLENIC T-CELL LYMPHOMA
     Dosage: UNK, UNKNOWN FREQ.
     Route: 065
  3. DEXAMETHASONE. [Suspect]
     Active Substance: DEXAMETHASONE
     Indication: HEPATOSPLENIC T-CELL LYMPHOMA
     Dosage: UNK, UNKNOWN FREQ.
     Route: 065
  4. CYTARABINE. [Suspect]
     Active Substance: CYTARABINE
     Indication: HEPATOSPLENIC T-CELL LYMPHOMA
     Dosage: UNK, UNKNOWN FREQ.
     Route: 065
  5. VINORELBINE [Suspect]
     Active Substance: VINORELBINE\VINORELBINE TARTRATE
     Indication: HEPATOSPLENIC T-CELL LYMPHOMA
     Dosage: UNK, UNKNOWN FREQ.
     Route: 065
  6. CISPLATIN. [Suspect]
     Active Substance: CISPLATIN
     Indication: HEPATOSPLENIC T-CELL LYMPHOMA
     Dosage: UNK UNK, UNKNOWN FREQ.
     Route: 065
  7. CLADRIBINE. [Suspect]
     Active Substance: CLADRIBINE
     Indication: HEPATOSPLENIC T-CELL LYMPHOMA
     Dosage: UNK, UNKNOWN FREQ.
     Route: 065
  8. BENDAMUSTINE HYDROCHLORIDE. [Suspect]
     Active Substance: BENDAMUSTINE HYDROCHLORIDE
     Indication: HEPATOSPLENIC T-CELL LYMPHOMA
     Dosage: UNK UNK, UNKNOWN FREQ.
     Route: 065

REACTIONS (2)
  - Off label use [Unknown]
  - Neoplasm progression [Unknown]
